FAERS Safety Report 15776755 (Version 1)
Quarter: 2018Q4

REPORT INFORMATION
  Report Type: Spontaneous
  Country: TR (occurrence: TR)
  Receive Date: 20181231
  Receipt Date: 20181231
  Transmission Date: 20190205
  Serious: Yes (Other)
  Sender: FDA-Public Use
  Company Number: TR-BAYER-2018-243405

PATIENT
  Age: 70 Year
  Sex: Male

DRUGS (3)
  1. STATIN [NYSTATIN] [Concomitant]
     Active Substance: NYSTATIN
  2. CILOSTAZOL. [Concomitant]
     Active Substance: CILOSTAZOL
  3. ACETYLSALICYLIC ACID({=100 MG) [Suspect]
     Active Substance: ASPIRIN

REACTIONS (2)
  - Peripheral artery occlusion [None]
  - Drug ineffective [None]
